FAERS Safety Report 4648492-7 (Version None)
Quarter: 2005Q2

REPORT INFORMATION
  Report Type: 
  Country: None (occurrence: None)
  Receive Date: 20050427
  Receipt Date: 20050404
  Transmission Date: 20051028
  Serious: Yes (Hospitalization)
  Sender: FDA-Public Use
  Company Number: 05-0043PO FU 1

PATIENT
  Age: 12 Year
  Sex: Male

DRUGS (2)
  1. PONTAL (MEFANEMIC ACID) [Suspect]
     Indication: PYREXIA
     Dates: start: 20050220, end: 20050220
  2. ZITHROMAX [Suspect]
     Indication: UPPER RESPIRATORY TRACT INFECTION
     Dosage: 500 MG, TABS; PO
     Route: 048
     Dates: start: 20050224, end: 20050224

REACTIONS (7)
  - ASTHMA [None]
  - DRUG INEFFECTIVE [None]
  - FEELING ABNORMAL [None]
  - LEUKOPENIA [None]
  - MALAISE [None]
  - OEDEMA MUCOSAL [None]
  - STOMATITIS [None]
